FAERS Safety Report 11999736 (Version 1)
Quarter: 2016Q1

REPORT INFORMATION
  Report Type: Spontaneous
  Country: US (occurrence: None)
  Receive Date: 20160203
  Receipt Date: 20160203
  Transmission Date: 20160526
  Serious: Yes (Other)
  Sender: FDA-Public Use
  Company Number: None

PATIENT
  Age: 83 Year
  Sex: Female
  Weight: 41.3 kg

DRUGS (13)
  1. RANITIDINE [Concomitant]
     Active Substance: RANITIDINE\RANITIDINE HYDROCHLORIDE
  2. CALCITONIN [Concomitant]
     Active Substance: CALCITONIN
  3. HYDROCORTISONNE [Concomitant]
  4. ARTIFICIAL TEARS [Concomitant]
     Active Substance: GLYCERIN\HYPROMELLOSES\POLYETHYLENE GLYCOL 400
  5. KETOKONAZOLE [Concomitant]
  6. LEVETIRACETAM 100MG HITECH PHARMACAL [Suspect]
     Active Substance: LEVETIRACETAM
     Indication: ANTICONVULSANT DRUG LEVEL ABOVE THERAPEUTIC
     Route: 048
     Dates: start: 20151204, end: 20160119
  7. LEVETIRACETAM 100MG HITECH PHARMACAL [Suspect]
     Active Substance: LEVETIRACETAM
     Indication: SEIZURE
     Route: 048
     Dates: start: 20151204, end: 20160119
  8. ASPIRIN. [Concomitant]
     Active Substance: ASPIRIN
  9. IBUPROFEN. [Concomitant]
     Active Substance: IBUPROFEN
  10. ATORVASTATIN [Concomitant]
     Active Substance: ATORVASTATIN
  11. DOCUSATE [Concomitant]
     Active Substance: DOCUSATE
  12. POTASSIUM CHLORIDE. [Concomitant]
     Active Substance: POTASSIUM CHLORIDE
  13. VERAPAMIL [Concomitant]
     Active Substance: VERAPAMIL HYDROCHLORIDE

REACTIONS (2)
  - Mental status changes [None]
  - Thrombocytopenia [None]

NARRATIVE: CASE EVENT DATE: 20160119
